FAERS Safety Report 24605305 (Version 1)
Quarter: 2024Q4

REPORT INFORMATION
  Report Type: Spontaneous
  Country: US (occurrence: US)
  Receive Date: 20241111
  Receipt Date: 20241111
  Transmission Date: 20250115
  Serious: No
  Sender: SANOFI AVENTIS
  Company Number: US-SA-2024SA313550

PATIENT
  Age: 30 Year
  Sex: Male

DRUGS (2)
  1. ELOCTATE [Suspect]
     Active Substance: EFMOROCTOCOG ALFA
     Indication: Factor VIII deficiency
     Dosage: FREQUENCY: EVERY 4 DAYS ANDEVERY 24 HOURS AS NEEDED FOR BLEEDS
     Route: 042
     Dates: start: 201303
  2. ELOCTATE [Suspect]
     Active Substance: EFMOROCTOCOG ALFA
     Indication: Factor VIII deficiency
     Dosage: FREQUENCY: EVERY 4 DAYS ANDEVERY 24 HOURS AS NEEDED FOR BLEEDS
     Route: 042
     Dates: start: 201303

REACTIONS (1)
  - Haematoma [Recovered/Resolved]
